FAERS Safety Report 6758573-X (Version None)
Quarter: 2010Q2

REPORT INFORMATION
  Report Type: 
  Country: None (occurrence: None)
  Receive Date: 20100607
  Receipt Date: 20100209
  Transmission Date: 20101027
  Serious: Yes (Other)
  Sender: FDA-Public Use
  Company Number: US-SANOFI-AVENTIS-2010SA008117

PATIENT
  Age: 66 Year
  Sex: Female

DRUGS (2)
  1. LANTUS [Suspect]
     Dosage: DOSE:30 UNIT(S)
     Route: 058
     Dates: start: 20070101
  2. SOLOSTAR [Suspect]
     Dates: start: 20080101

REACTIONS (3)
  - CATARACT [None]
  - EYE DISORDER [None]
  - EYE HAEMORRHAGE [None]
